FAERS Safety Report 6344817-5 (Version None)
Quarter: 2009Q3

REPORT INFORMATION
  Report Type: 
  Country: None (occurrence: None)
  Receive Date: 20090904
  Receipt Date: 20090817
  Transmission Date: 20100115
  Serious: Yes (Hospitalization)
  Sender: FDA-Public Use
  Company Number: 2009AL003729

PATIENT
  Age: 50 Year
  Sex: Male

DRUGS (23)
  1. DIGOXIN [Suspect]
     Dosage: 0.25MG, DAILY, PO
     Route: 048
     Dates: start: 20061211
  2. NOVOLIN R [Concomitant]
  3. LANTUS [Concomitant]
  4. LASIX [Concomitant]
  5. K-DUR [Concomitant]
  6. LISINOPRIL [Concomitant]
  7. LOPRESSOR [Concomitant]
  8. APRESOLINE [Concomitant]
  9. PLAVIX [Concomitant]
  10. PERCOCET [Concomitant]
  11. ATIVAN [Concomitant]
  12. PRILOSEC [Concomitant]
  13. ACIPHEX [Concomitant]
  14. LORTAB [Concomitant]
  15. ASPIRIN [Concomitant]
  16. HYDRALAZINE HCL [Concomitant]
  17. METOPROLOL TARTRATE [Concomitant]
  18. GLUCOPHAGE [Concomitant]
  19. CLONIDINE [Concomitant]
  20. PROZAC [Concomitant]
  21. EFFEXOR [Concomitant]
  22. PREVACID [Concomitant]
  23. TRICOR [Concomitant]

REACTIONS (24)
  - ANGER [None]
  - ANXIETY [None]
  - APHASIA [None]
  - ARTERIAL OCCLUSIVE DISEASE [None]
  - ASTHENIA [None]
  - CARDIOACTIVE DRUG LEVEL INCREASED [None]
  - CELLULITIS [None]
  - CEREBROVASCULAR ACCIDENT [None]
  - CHEST PAIN [None]
  - COUGH [None]
  - DYSARTHRIA [None]
  - DYSLIPIDAEMIA [None]
  - DYSPHAGIA [None]
  - EMOTIONAL DISORDER [None]
  - FACIAL PARESIS [None]
  - GASTROOESOPHAGEAL REFLUX DISEASE [None]
  - HYPOPHAGIA [None]
  - LOBAR PNEUMONIA [None]
  - MALIGNANT HYPERTENSION [None]
  - PAIN IN EXTREMITY [None]
  - PULMONARY CONGESTION [None]
  - THERAPEUTIC AGENT TOXICITY [None]
  - TRANSIENT ISCHAEMIC ATTACK [None]
  - URINE OUTPUT DECREASED [None]
